FAERS Safety Report 16319874 (Version 1)
Quarter: 2019Q2

REPORT INFORMATION
  Report Type: Spontaneous
  Country: US (occurrence: US)
  Receive Date: 20190516
  Receipt Date: 20190516
  Transmission Date: 20190711
  Serious: No
  Sender: FDA-Public Use
  Company Number: US-BAYER-2019-096418

PATIENT
  Age: 52 Year
  Sex: Female
  Weight: 62.13 kg

DRUGS (2)
  1. MONTELUKAST [Suspect]
     Active Substance: MONTELUKAST SODIUM
     Indication: HYPERSENSITIVITY
     Dosage: UNK UNK, QD
  2. MIRALAX [Suspect]
     Active Substance: POLYETHYLENE GLYCOL 3350
     Indication: GASTROINTESTINAL DISORDER
     Dosage: A FULL DOSE EVERY MONDAY AND THURSDAY.
     Route: 048
     Dates: start: 2012

REACTIONS (2)
  - Product solubility abnormal [None]
  - Incorrect dose administered [Unknown]

NARRATIVE: CASE EVENT DATE: 2012
